FAERS Safety Report 9098772 (Version 2)
Quarter: 2013Q3

REPORT INFORMATION
  Report Type: Report from Study
  Country: JP (occurrence: JP)
  Receive Date: 20130213
  Receipt Date: 20130829
  Transmission Date: 20140515
  Serious: Yes (Other)
  Sender: FDA-Public Use
  Company Number: JP-VERTEX PHARMACEUTICALS INC.-2013-001902

PATIENT
  Age: 61 Year
  Sex: Male

DRUGS (10)
  1. VX-950 (TELAPREVIR) [Suspect]
     Indication: HEPATITIS C
     Dosage: 2250 MG, QD
     Route: 048
     Dates: start: 20120315, end: 20120516
  2. VX-950 (TELAPREVIR) [Suspect]
     Dosage: 1500 MG, QD
     Route: 048
     Dates: start: 20120517, end: 20120607
  3. REBETOL [Suspect]
     Indication: HEPATITIS C
     Dosage: 800 MG, QD
     Route: 048
     Dates: start: 20120315, end: 20120411
  4. REBETOL [Suspect]
     Dosage: 400 MG, QD
     Route: 048
     Dates: start: 20120412, end: 20120830
  5. PEGINTRON [Suspect]
     Indication: HEPATITIS C
     Dosage: 1.5 ?G/KG, QW
     Route: 058
     Dates: start: 20120315, end: 20120823
  6. URSO [Concomitant]
     Dosage: 600 MG, QD
     Route: 048
  7. GLUFAST [Concomitant]
     Dosage: 30 MG, QD
     Route: 048
  8. METHYCOBAL [Concomitant]
     Dosage: 1500 ?G, QD
     Route: 048
  9. PROCYLIN [Concomitant]
     Dosage: 60 ?G, QD
     Route: 048
  10. PHOSPHATIDYL CHOLINE [Concomitant]
     Dosage: 6 DF, QD
     Route: 048
     Dates: start: 20120314

REACTIONS (1)
  - White blood cell count decreased [Recovered/Resolved]
